FAERS Safety Report 11252801 (Version 1)
Quarter: 2015Q3

REPORT INFORMATION
  Report Type: Spontaneous
  Country: BR (occurrence: BR)
  Receive Date: 20150708
  Receipt Date: 20150708
  Transmission Date: 20151125
  Serious: Yes (Other)
  Sender: FDA-Public Use
  Company Number: BR-JNJFOC-20150702820

PATIENT
  Age: 23 Year
  Sex: Male
  Weight: 78 kg

DRUGS (2)
  1. CENTRUM MULTIVITAMINS [Concomitant]
     Active Substance: VITAMINS
     Route: 065
     Dates: start: 2015
  2. LEVAQUIN [Suspect]
     Active Substance: LEVOFLOXACIN
     Indication: TONSILLITIS
     Route: 065
     Dates: start: 20150601

REACTIONS (4)
  - Abasia [Not Recovered/Not Resolved]
  - Pain [Not Recovered/Not Resolved]
  - Tendon pain [Not Recovered/Not Resolved]
  - Abdominal pain [Not Recovered/Not Resolved]

NARRATIVE: CASE EVENT DATE: 20150702
